FAERS Safety Report 8494800-9 (Version None)
Quarter: 2012Q3

REPORT INFORMATION
  Report Type: 
  Country: None (occurrence: None)
  Receive Date: 20120709
  Receipt Date: 20120702
  Transmission Date: 20120928
  Serious: Yes (Hospitalization, Other)
  Sender: FDA-Public Use
  Company Number: US-BAYER-2012-002888

PATIENT
  Age: 15 Year
  Sex: Female
  Weight: 129 kg

DRUGS (4)
  1. YASMIN [Suspect]
     Indication: CONTRACEPTION
     Dosage: UNK
     Dates: start: 20030901, end: 20031219
  2. YASMIN [Suspect]
     Indication: POLYCYSTIC OVARIES
  3. VITAMIN B-12 [Concomitant]
     Dosage: 1000 MCG/ML, UNK
  4. METFORMIN HCL [Concomitant]
     Dosage: 500 MG, UNK

REACTIONS (14)
  - INJURY [None]
  - PAIN [None]
  - DYSPNOEA [None]
  - GENERAL PHYSICAL HEALTH DETERIORATION [None]
  - PNEUMONIA [None]
  - HAEMORRHAGE [None]
  - EMOTIONAL DISTRESS [None]
  - PAIN IN EXTREMITY [None]
  - PULMONARY EMBOLISM [None]
  - CHEST PAIN [None]
  - BACK PAIN [None]
  - ABASIA [None]
  - DEEP VEIN THROMBOSIS [None]
  - ANXIETY [None]
